FAERS Safety Report 4999642-4 (Version None)
Quarter: 2006Q2

REPORT INFORMATION
  Report Type: 
  Country: None (occurrence: None)
  Receive Date: 20060511
  Receipt Date: 20060403
  Transmission Date: 20061013
  Serious: Yes (Hospitalization)
  Sender: FDA-Public Use
  Company Number: US-MERCK-0604USA00787

PATIENT
  Age: 75 Year
  Sex: Male
  Weight: 91 kg

DRUGS (14)
  1. VIOXX [Suspect]
     Indication: ARTHRITIS
     Route: 048
     Dates: start: 20000327, end: 20040930
  2. BIAXIN [Concomitant]
     Route: 065
  3. DOXEPIN HYDROCHLORIDE [Concomitant]
     Indication: DEPRESSION
     Route: 048
     Dates: start: 19971017, end: 20041101
  4. LASIX [Concomitant]
     Route: 048
     Dates: start: 19971017, end: 20041201
  5. HYDROCODONE BITARTRATE [Concomitant]
     Route: 048
     Dates: start: 20021118, end: 20021123
  6. METHYLPREDNISOLONE [Concomitant]
     Route: 065
  7. NIFEDIPINE [Concomitant]
     Indication: HYPERTENSION
     Route: 048
     Dates: start: 19971017, end: 20000101
  8. NITROGLYCERIN [Concomitant]
     Route: 065
  9. QUINIDINE SULFATE [Concomitant]
     Indication: ARRHYTHMIA SUPRAVENTRICULAR
     Route: 065
  10. PROCARDIA [Concomitant]
     Indication: HYPERTENSION
     Route: 048
     Dates: start: 20010501, end: 20041201
  11. ZOCOR [Concomitant]
     Indication: BLOOD CHOLESTEROL INCREASED
     Route: 048
     Dates: start: 19980818, end: 20010730
  12. ACETAMINOPHEN AND PROPOXYPHENE NAPSYLATE [Concomitant]
     Route: 048
     Dates: start: 20000503, end: 20050802
  13. CELEBREX [Concomitant]
     Route: 048
     Dates: start: 20000503, end: 20010203
  14. OXYCODONE [Concomitant]
     Route: 048
     Dates: start: 19990807, end: 20050901

REACTIONS (5)
  - DEPRESSION [None]
  - EXOSTOSIS [None]
  - HYPERCHOLESTEROLAEMIA [None]
  - HYPERSENSITIVITY [None]
  - MYOCARDIAL INFARCTION [None]
